FAERS Safety Report 14129097 (Version 1)
Quarter: 2017Q4

REPORT INFORMATION
  Report Type: Spontaneous
  Country: TR (occurrence: TR)
  Receive Date: 20171026
  Receipt Date: 20171026
  Transmission Date: 20180321
  Serious: Yes (Other)
  Sender: FDA-Public Use
  Company Number: TR-TEVA-818744ISR

PATIENT
  Age: 59 Year
  Sex: Male
  Weight: 86 kg

DRUGS (2)
  1. AZAVIX [Suspect]
     Active Substance: AZACITIDINE
     Indication: CHRONIC MYELOID LEUKAEMIA
     Dosage: 150 MILLIGRAM DAILY; AZAVIX 100 MG SC VIAL INCLUDING POWDER FOR INJECTION SUSPENSION
     Route: 058
     Dates: start: 20171009, end: 20171016
  2. URIKOLIZ [Concomitant]
     Active Substance: ALLOPURINOL
     Dosage: URIKOLIZ 300 MG TABLET
     Route: 048
     Dates: start: 20171009, end: 20171016

REACTIONS (5)
  - Injection site induration [Not Recovered/Not Resolved]
  - Nausea [Not Recovered/Not Resolved]
  - Tachycardia [Not Recovered/Not Resolved]
  - Vomiting [Not Recovered/Not Resolved]
  - Injection site pain [Not Recovered/Not Resolved]

NARRATIVE: CASE EVENT DATE: 20171012
